FAERS Safety Report 4788806-0 (Version None)
Quarter: 2005Q4

REPORT INFORMATION
  Report Type: 
  Country: None (occurrence: None)
  Receive Date: 20051004
  Receipt Date: 20050921
  Transmission Date: 20060501
  Serious: Yes (Hospitalization)
  Sender: FDA-Public Use
  Company Number: 2005125954

PATIENT
  Age: 54 Year
  Sex: Female
  Weight: 45.3597 kg

DRUGS (12)
  1. AZITHROMYCIN [Suspect]
     Indication: UPPER RESPIRATORY TRACT INFECTION
     Dosage: 500 MG (500 MG, 1 IN 1 D), ORAL
     Route: 048
     Dates: start: 20050407, end: 20050409
  2. PROGYNOVA         (ESTRADIOL VALERTE) [Concomitant]
  3. ATACAND PLUS           (CANDESARTAN CILEXETIL, HYDROCHLOROTHIAZIDE) [Concomitant]
  4. PULMICORT [Concomitant]
  5. OXIS (FORMOTEROL) [Concomitant]
  6. AERIUS (DESLORATADINE) [Concomitant]
  7. CITALOPRAM HYDROBROMIDE [Concomitant]
  8. EFFEXOR [Concomitant]
  9. LANSOPRAZOLE [Concomitant]
  10. VOLTAREN [Concomitant]
  11. NORFLEX [Concomitant]
  12. ACETAMINOPHEN [Concomitant]

REACTIONS (1)
  - TENDON RUPTURE [None]
